FAERS Safety Report 9268027 (Version 2)
Quarter: 2014Q1

REPORT INFORMATION
  Report Type: Report from Study
  Country: US (occurrence: US)
  Receive Date: 20130502
  Receipt Date: 20140213
  Transmission Date: 20141002
  Serious: Yes (Hospitalization, Other)
  Sender: FDA-Public Use
  Company Number: US-ALEXION-A201201733

PATIENT
  Age: 41 Year
  Sex: Female

DRUGS (37)
  1. SOLIRIS [Suspect]
     Indication: HAEMOLYTIC URAEMIC SYNDROME
     Dosage: 900 MG, QW
     Route: 042
     Dates: start: 20120824
  2. ACETAMINOPHEN [Concomitant]
     Indication: PAIN
     Dosage: 650 MG, Q 4 HRS PRN
     Route: 048
  3. VENTOLIN HFA [Concomitant]
     Indication: WHEEZING
     Dosage: 2 PUFFS, PRN
     Route: 050
  4. LIPITOR [Concomitant]
     Dosage: 20 MG, UNK
     Route: 048
  5. NEPHROCAPS [Concomitant]
     Dosage: 1 MG, UNK
     Route: 048
  6. COREG [Concomitant]
     Dosage: 6.25 MG, BID
     Route: 048
  7. SENSIPAR [Concomitant]
     Dosage: 30 MG, QD
     Route: 048
  8. TEMOVATE [Concomitant]
     Dosage: APPLY BID
     Route: 061
  9. CUBICIN [Concomitant]
     Dosage: 600 MG, Q 48 HRS
     Route: 042
  10. ARANESP [Concomitant]
     Dosage: 100 ?G, QW
     Route: 058
  11. DEPAKOTE [Concomitant]
     Dosage: 500 MG, BID
     Route: 048
  12. COLACE [Concomitant]
     Dosage: 100 MG, BID
     Route: 048
  13. NEXIUM [Concomitant]
     Dosage: 40 MG, BID
     Route: 048
  14. CLIMARA [Concomitant]
     Dosage: 0.175 MG/24HR, WEEKLY
     Route: 062
  15. ACTIQ [Concomitant]
     Indication: PAIN
     Dosage: 400 ?G, Q 6 HRS PRN
     Route: 002
  16. DURAGESIC [Concomitant]
     Dosage: 100 MCG/HR, 2 PATCHES Q 72 HRS
     Route: 062
  17. FLONASE [Concomitant]
     Dosage: 50 MCG/ACT, 2 SPRAYS QD
     Route: 045
  18. NEURONTIN [Concomitant]
     Dosage: 100 MG, BID
     Route: 048
  19. HEPARIN [Concomitant]
     Dosage: 5000 IU, G 8 HRS
     Route: 042
  20. DILAUDID [Concomitant]
     Dosage: 4-8 MG Q 3 HRS, PRN
     Route: 048
  21. DILAUDID [Concomitant]
     Dosage: 1 MG, SINGLE
     Route: 042
     Dates: start: 20120918, end: 20120918
  22. ATARAX [Concomitant]
     Indication: PRURITUS
     Dosage: 10 MG, TID
     Route: 048
  23. CHRONULAC [Concomitant]
     Indication: CONSTIPATION
     Dosage: 20 G, QD
     Route: 048
  24. SYNTHROID [Concomitant]
     Dosage: 100 ?G, QD
     Route: 048
  25. ZESTRIL [Concomitant]
     Dosage: 10 MG, QD
     Route: 048
  26. ATIVAN [Concomitant]
     Indication: ANXIETY
     Dosage: 1 MG, Q 6 HRS PRN
     Route: 048
  27. ZOFRAN [Concomitant]
     Indication: NAUSEA
     Dosage: 4 MG, Q 6 HRS PRN
     Route: 042
  28. ZOFRAN [Concomitant]
     Indication: VOMITING
  29. DILANTIN [Concomitant]
     Dosage: 200 MG, BID
     Route: 048
  30. ZOSYN [Concomitant]
     Dosage: 4.5 G, Q 12 HRS
     Route: 042
  31. MIRALAX [Concomitant]
     Dosage: 17 G, QD
     Route: 048
  32. REQUIP [Concomitant]
     Dosage: 0.5 MG, TID
     Route: 048
  33. SENOKOT [Concomitant]
     Dosage: .6 UNK, UNK
     Route: 048
  34. SENOKOT [Concomitant]
     Dosage: .6 UNK, UNK
     Route: 048
  35. RENVELA [Concomitant]
     Dosage: 3200 MG, TID WITH MEALS
     Route: 048
  36. SODIUM CHLORIDE [Concomitant]
     Indication: CATHETER MANAGEMENT
     Dosage: 5 ML, AS DIRECTED
     Route: 042
  37. ANTICOAGULANT CITRATE DEXTROSE [Concomitant]
     Dosage: UNK
     Route: 042
     Dates: end: 20120918

REACTIONS (9)
  - Arteriovenous fistula site infection [Not Recovered/Not Resolved]
  - Condition aggravated [Not Recovered/Not Resolved]
  - Catheter site abscess [Not Recovered/Not Resolved]
  - Dialysis [Unknown]
  - Dyspnoea [Unknown]
  - Oedema [Unknown]
  - Fatigue [Unknown]
  - Anxiety [Unknown]
  - Somnolence [Unknown]
